FAERS Safety Report 16679691 (Version 4)
Quarter: 2020Q4

REPORT INFORMATION
  Report Type: Spontaneous
  Country: US (occurrence: US)
  Receive Date: 20190807
  Receipt Date: 20201015
  Transmission Date: 20210113
  Serious: No
  Sender: FDA-Public Use
  Company Number: US-PFIZER INC-2019335382

PATIENT
  Age: 73 Year
  Sex: Female
  Weight: 57 kg

DRUGS (1)
  1. PREMARIN [Suspect]
     Active Substance: ESTROGENS, CONJUGATED
     Indication: POSTMENOPAUSE
     Dosage: 0.625
     Dates: start: 1984

REACTIONS (8)
  - Oral disorder [Unknown]
  - Pain [Unknown]
  - Tooth disorder [Unknown]
  - Bruxism [Unknown]
  - Tooth fracture [Unknown]
  - Illness [Unknown]
  - Temporomandibular joint syndrome [Unknown]
  - Visual impairment [Unknown]
